FAERS Safety Report 24022583 (Version 2)
Quarter: 2024Q2

REPORT INFORMATION
  Report Type: Report from Study
  Country: US (occurrence: US)
  Receive Date: 20240627
  Receipt Date: 20240628
  Transmission Date: 20240716
  Serious: No
  Sender: FDA-Public Use
  Company Number: US-ROCHE-3441286

PATIENT
  Age: 92 Year
  Sex: Female
  Weight: 62.14 kg

DRUGS (1)
  1. ALECENSA [Suspect]
     Active Substance: ALECTINIB HYDROCHLORIDE
     Indication: Lung neoplasm malignant
     Dosage: TOOK 2 CAPSULES BY MOUTH TWICE A DAY WITH FOOD
     Route: 048
     Dates: start: 202212

REACTIONS (4)
  - Back pain [Unknown]
  - Constipation [Unknown]
  - Peripheral swelling [Unknown]
  - Pollakiuria [Unknown]
